FAERS Safety Report 6867911-9 (Version None)
Quarter: 2010Q3

REPORT INFORMATION
  Report Type: 
  Country: None (occurrence: None)
  Receive Date: 20100722
  Receipt Date: 20080505
  Transmission Date: 20110219
  Serious: No
  Sender: FDA-Public Use
  Company Number: US-PFIZER INC-2008040010

PATIENT
  Sex: Male
  Weight: 95.5 kg

DRUGS (6)
  1. CHANTIX [Suspect]
     Indication: SMOKING CESSATION THERAPY
  2. ALL OTHER THERAPEUTIC PRODUCTS [Suspect]
  3. EFFEXOR [Concomitant]
  4. XANAX [Concomitant]
  5. LITHIUM [Concomitant]
  6. SYNTHROID [Concomitant]

REACTIONS (7)
  - AGITATION [None]
  - ANXIETY [None]
  - DRUG TOLERANCE [None]
  - DRUG WITHDRAWAL SYNDROME [None]
  - INSOMNIA [None]
  - IRRITABILITY [None]
  - SOMNOLENCE [None]
